FAERS Safety Report 17225208 (Version 1)
Quarter: 2019Q4

REPORT INFORMATION
  Report Type: Spontaneous
  Country: US (occurrence: US)
  Receive Date: 20191210
  Receipt Date: 20191210
  Transmission Date: 20200122
  Serious: No
  Sender: FDA-Public Use
  Company Number: None

PATIENT
  Age: 49 Year
  Sex: Female

DRUGS (1)
  1. ACTHAR [Suspect]
     Active Substance: CORTICOTROPIN
     Route: 058
     Dates: start: 201911

REACTIONS (6)
  - Dyspnoea [None]
  - Anxiety [None]
  - Therapy cessation [None]
  - Frustration tolerance decreased [None]
  - Depressed mood [None]
  - Insurance issue [None]

NARRATIVE: CASE EVENT DATE: 20191210
